FAERS Safety Report 18381199 (Version 1)
Quarter: 2020Q4

REPORT INFORMATION
  Report Type: Spontaneous
  Country: US (occurrence: US)
  Receive Date: 20201013
  Receipt Date: 20201013
  Transmission Date: 20210114
  Serious: Yes (Other)
  Sender: FDA-Public Use
  Company Number: None

PATIENT
  Age: 53 Year
  Sex: Male
  Weight: 118.35 kg

DRUGS (9)
  1. BRAFTOVI [Suspect]
     Active Substance: ENCORAFENIB
     Indication: MALIGNANT MELANOMA
     Route: 048
     Dates: start: 20190420, end: 20201013
  2. VITAMIN D [Concomitant]
     Active Substance: VITAMIN D NOS
  3. HYDROCORTISONE ACE-PRAMOXINE [Concomitant]
  4. HYDROCODONE/ACETAMINOPHEN [Concomitant]
     Active Substance: ACETAMINOPHEN\HYDROCODONE
  5. RANITIDINE. [Concomitant]
     Active Substance: RANITIDINE
  6. LOSARTAN 100MG [Concomitant]
     Active Substance: LOSARTAN
  7. MEKTOVI [Suspect]
     Active Substance: BINIMETINIB
     Indication: MALIGNANT MELANOMA
     Route: 048
     Dates: start: 20190420, end: 20201013
  8. GLIMEPIRIDE. [Concomitant]
     Active Substance: GLIMEPIRIDE
  9. METFORMIN [Concomitant]
     Active Substance: METFORMIN HYDROCHLORIDE

REACTIONS (1)
  - Disease progression [None]

NARRATIVE: CASE EVENT DATE: 20201013
